FAERS Safety Report 8240329-2 (Version None)
Quarter: 2012Q1

REPORT INFORMATION
  Report Type: 
  Country: None (occurrence: None)
  Receive Date: 20120328
  Receipt Date: 20120328
  Transmission Date: 20120608
  Serious: Yes (Life-Threatening, Hospitalization)
  Sender: FDA-Public Use
  Company Number: None

PATIENT
  Age: 55 Year
  Sex: Female
  Weight: 72.574 kg

DRUGS (1)
  1. SULINDAC [Suspect]
     Indication: INFLAMMATION
     Dosage: L TAB
     Route: 048
     Dates: start: 20120323, end: 20120324

REACTIONS (5)
  - THERMAL BURN [None]
  - EYE SWELLING [None]
  - URTICARIA [None]
  - RASH GENERALISED [None]
  - PRURITUS GENERALISED [None]
